FAERS Safety Report 8764479 (Version 7)
Quarter: 2014Q1

REPORT INFORMATION
  Report Type: Report from Study
  Country: US (occurrence: US)
  Receive Date: 20120831
  Receipt Date: 20140103
  Transmission Date: 20141002
  Serious: Yes (Hospitalization, Disabling)
  Sender: FDA-Public Use
  Company Number: US-ACTELION-A-US2012-70742

PATIENT
  Age: 58 Year
  Sex: Female

DRUGS (4)
  1. VENTAVIS [Suspect]
     Indication: PULMONARY ARTERIAL HYPERTENSION
     Dosage: 4-5 X DAY
     Route: 055
     Dates: start: 201109
  2. SILDENAFIL [Concomitant]
     Indication: PULMONARY ARTERIAL HYPERTENSION
  3. COUMADIN [Concomitant]
  4. DIGOXIN [Concomitant]

REACTIONS (7)
  - Paracentesis [Recovering/Resolving]
  - Sickle cell anaemia [Recovering/Resolving]
  - Transfusion [Recovering/Resolving]
  - Ascites [Recovering/Resolving]
  - Malaise [Recovering/Resolving]
  - Dyspnoea [Recovering/Resolving]
  - Drug dose omission [Unknown]
